FAERS Safety Report 9254723 (Version 1)
Quarter: 2013Q1

REPORT INFORMATION
  Report Type: Spontaneous
  Country: US (occurrence: None)
  Receive Date: 20121203
  Receipt Date: 20121203
  Transmission Date: 20140127
  Serious: Yes (Hospitalization, Other)
  Sender: FDA-Public Use
  Company Number: 2011SP056192

PATIENT
  Age: 30 Year
  Sex: Female
  Weight: 79.4 kg

DRUGS (1)
  1. NUVARING [Suspect]
     Indication: CONTRACEPTION
     Dates: start: 200903, end: 20091225

REACTIONS (3)
  - Cerebrovascular accident [None]
  - Transient ischaemic attack [None]
  - Pre-eclampsia [None]
